FAERS Safety Report 9714090 (Version 1)
Quarter: 2013Q4

REPORT INFORMATION
  Report Type: Spontaneous
  Country: CH (occurrence: CH)
  Receive Date: 20131126
  Receipt Date: 20131126
  Transmission Date: 20140711
  Serious: Yes (Hospitalization, Other)
  Sender: FDA-Public Use
  Company Number: CH-PFIZER INC-2013332335

PATIENT
  Age: 53 Year
  Sex: Female

DRUGS (4)
  1. EFEXOR ER [Suspect]
     Indication: POISONING
     Dosage: 4. 5 G, 1X/DAY (30 TABLETS OF 150 MG)
     Route: 048
     Dates: start: 20131105, end: 20131105
  2. REMERON [Suspect]
     Indication: POISONING
     Dosage: 300 MG, 1X/DAY (10 X 30 MG)
     Route: 048
     Dates: start: 20131105, end: 20131105
  3. VITAMIN D3 [Concomitant]
     Dosage: UNK
  4. IRON [Concomitant]
     Dosage: UNK

REACTIONS (6)
  - Off label use [Unknown]
  - Suicide attempt [Recovered/Resolved]
  - Drug level increased [Recovering/Resolving]
  - Convulsion [Recovered/Resolved]
  - Electrocardiogram QT prolonged [Recovered/Resolved]
  - Hypoglycaemia [Recovered/Resolved]
